FAERS Safety Report 8190022-X (Version None)
Quarter: 2012Q1

REPORT INFORMATION
  Report Type: 
  Country: None (occurrence: None)
  Receive Date: 20120305
  Receipt Date: 20120227
  Transmission Date: 20120608
  Serious: Yes (Other)
  Sender: FDA-Public Use
  Company Number: 2012MA002656

PATIENT
  Age: 54 Year
  Sex: Female

DRUGS (11)
  1. DEXTROMORAMIDE [Concomitant]
  2. ALBUTEROL [Concomitant]
  3. IPRATROPIUM BROMIDE [Concomitant]
  4. AMILORIDE HYDROCHLORIDE [Concomitant]
  5. BUMETANIDE [Concomitant]
  6. RANITIDINE [Concomitant]
  7. WARFARIN SODIUM [Suspect]
     Dosage: 6 MG, QD
  8. BECLOMETHASONE DIPROPIONATE [Concomitant]
  9. AMITRIPTYLINE HCL [Concomitant]
  10. LORAZEPAM [Concomitant]
  11. MICONAZOLE NITRATE [Suspect]
     Indication: PRODUCT USED FOR UNKNOWN INDICATION
     Dosage: 500 MG, QD, PO
     Route: 048

REACTIONS (4)
  - INTERNATIONAL NORMALISED RATIO INCREASED [None]
  - DRUG INTERACTION [None]
  - CONTUSION [None]
  - MELAENA [None]
